FAERS Safety Report 5517933-5 (Version None)
Quarter: 2007Q4

REPORT INFORMATION
  Report Type: 
  Country: None (occurrence: None)
  Receive Date: 20071114
  Receipt Date: 20071114
  Transmission Date: 20080405
  Serious: No
  Sender: FDA-Public Use
  Company Number: None

PATIENT

DRUGS (3)
  1. HYDROCODONE BITARTRATE AND ACETAMINOPHEN [Suspect]
     Indication: PAIN
     Dosage: ONE TABLET Q 4 -6 HRS PRN PO
     Route: 048
     Dates: start: 20060822, end: 20071112
  2. HYDROCODONE BITARTRATE AND ACETAMINOPHEN [Suspect]
  3. HYDROCODONE BITARTRATE AND ACETAMINOPHEN [Suspect]

REACTIONS (4)
  - DRUG INEFFECTIVE [None]
  - MEDICATION ERROR [None]
  - PHARMACEUTICAL PRODUCT COMPLAINT [None]
  - WRONG DRUG ADMINISTERED [None]
